FAERS Safety Report 25770457 (Version 1)
Quarter: 2025Q3

REPORT INFORMATION
  Report Type: Spontaneous
  Country: US (occurrence: US)
  Receive Date: 20250908
  Receipt Date: 20250908
  Transmission Date: 20251020
  Serious: No
  Sender: AUROBINDO
  Company Number: ADE2025-1668

PATIENT
  Sex: Female

DRUGS (1)
  1. ANASTROZOLE [Suspect]
     Active Substance: ANASTROZOLE
     Indication: Breast cancer
     Route: 048
     Dates: start: 202308

REACTIONS (3)
  - Condition aggravated [Unknown]
  - Diverticulum intestinal [Unknown]
  - Migraine [Unknown]

NARRATIVE: CASE EVENT DATE: 20250401
